FAERS Safety Report 16196759 (Version 1)
Quarter: 2019Q2

REPORT INFORMATION
  Report Type: Spontaneous
  Country: CA (occurrence: CA)
  Receive Date: 20190415
  Receipt Date: 20190415
  Transmission Date: 20190711
  Serious: Yes (Other)
  Sender: FDA-Public Use
  Company Number: CA-ROCHE-2298712

PATIENT
  Sex: Male

DRUGS (11)
  1. ZOLOFT [Concomitant]
     Active Substance: SERTRALINE HYDROCHLORIDE
  2. ASPIRIN. [Concomitant]
     Active Substance: ASPIRIN
  3. METFORMIN [Concomitant]
     Active Substance: METFORMIN HYDROCHLORIDE
     Route: 065
  4. CELLCEPT [Suspect]
     Active Substance: MYCOPHENOLATE MOFETIL\MYCOPHENOLATE MOFETIL HYDROCHLORIDE
     Indication: OCULAR MYASTHENIA
     Dosage: ONGOING-YES
     Route: 065
  5. IVIG [Concomitant]
     Active Substance: HUMAN IMMUNOGLOBULIN G
     Route: 065
  6. MICARDIS [Concomitant]
     Active Substance: TELMISARTAN
  7. VITAMIN C [Concomitant]
     Active Substance: ASCORBIC ACID
  8. IMODIUM [Concomitant]
     Active Substance: LOPERAMIDE HYDROCHLORIDE
  9. MESTINON [Concomitant]
     Active Substance: PYRIDOSTIGMINE BROMIDE
  10. PREDNISONE. [Concomitant]
     Active Substance: PREDNISONE
  11. ATORVASTATIN [Concomitant]
     Active Substance: ATORVASTATIN

REACTIONS (7)
  - Blood glucose increased [Unknown]
  - Hyperglycaemia [Unknown]
  - Weight increased [Unknown]
  - Drug ineffective [Unknown]
  - White blood cell count increased [Unknown]
  - Lymphocyte count increased [Unknown]
  - Affect lability [Unknown]
